FAERS Safety Report 17882047 (Version 1)
Quarter: 2020Q2

REPORT INFORMATION
  Report Type: Spontaneous
  Country: US (occurrence: US)
  Receive Date: 20200610
  Receipt Date: 20200610
  Transmission Date: 20200714
  Serious: No
  Sender: FDA-Public Use
  Company Number: US-SEPTODONT-202005683

PATIENT
  Sex: Female

DRUGS (2)
  1. SEPTOCAINE [Suspect]
     Active Substance: ARTICAINE HYDROCHLORIDE\EPINEPHRINE BITARTRATE
     Indication: DENTAL LOCAL ANAESTHESIA
     Dosage: SOME OF THE PATIENTS REQUIRED UP TO TEN CARPULES BEFORE THEY WERE ABLE TO GET NUMB
     Route: 004
  2. SEPTOCAINE [Suspect]
     Active Substance: ARTICAINE HYDROCHLORIDE\EPINEPHRINE BITARTRATE
     Indication: DENTAL LOCAL ANAESTHESIA
     Dosage: SOME OF THE PATIENTS REQUIRED UP TO TEN CARPULES BEFORE THEY WERE ABLE TO GET NUMB
     Route: 004

REACTIONS (1)
  - Drug ineffective [Recovered/Resolved]
